FAERS Safety Report 17758747 (Version 1)
Quarter: 2020Q2

REPORT INFORMATION
  Report Type: Report from Study
  Country: None (occurrence: US)
  Receive Date: 20200508
  Receipt Date: 20200508
  Transmission Date: 20200714
  Serious: Yes (Hospitalization, Other)
  Sender: FDA-Public Use
  Company Number: US-ABBVIE-19K-163-3211509-00

PATIENT
  Age: 65 Year
  Sex: Female
  Weight: 59.47 kg

DRUGS (6)
  1. PREDNISONE. [Concomitant]
     Active Substance: PREDNISONE
     Indication: PRODUCT USED FOR UNKNOWN INDICATION
  2. HUMIRA [Suspect]
     Active Substance: ADALIMUMAB
     Indication: PSORIASIS
  3. HUMIRA [Suspect]
     Active Substance: ADALIMUMAB
     Indication: PSORIATIC ARTHROPATHY
     Route: 058
     Dates: end: 201909
  4. CARVEDILOL. [Concomitant]
     Active Substance: CARVEDILOL
     Indication: PRODUCT USED FOR UNKNOWN INDICATION
  5. SYNTHROID [Concomitant]
     Active Substance: LEVOTHYROXINE SODIUM
     Indication: HYPERSENSITIVITY
  6. PRAVASTATIN. [Concomitant]
     Active Substance: PRAVASTATIN
     Indication: BLOOD CHOLESTEROL ABNORMAL

REACTIONS (13)
  - Procedural intestinal perforation [Unknown]
  - Asthenia [Recovering/Resolving]
  - Weight decreased [Recovering/Resolving]
  - Large intestine polyp [Unknown]
  - Liver abscess [Unknown]
  - Memory impairment [Unknown]
  - Infection [Unknown]
  - Malaise [Unknown]
  - Joint range of motion decreased [Not Recovered/Not Resolved]
  - Volvulus [Unknown]
  - Pneumonia [Unknown]
  - Red blood cell count decreased [Unknown]
  - Incision site pain [Not Recovered/Not Resolved]

NARRATIVE: CASE EVENT DATE: 201910
